FAERS Safety Report 10060884 (Version 3)
Quarter: 2014Q2

REPORT INFORMATION
  Report Type: Spontaneous
  Country: US (occurrence: US)
  Receive Date: 20140404
  Receipt Date: 20140501
  Transmission Date: 20141212
  Serious: Yes (Other)
  Sender: FDA-Public Use
  Company Number: US-EXELIXIS-CABO-13003749

PATIENT
  Sex: Male

DRUGS (13)
  1. COMETRIQ [Suspect]
     Indication: PROSTATE CANCER
     Dosage: 60 MG, QD
     Route: 048
     Dates: start: 20130802, end: 2013
  2. COMETRIQ [Suspect]
     Dosage: 40 MG, QD
     Route: 048
     Dates: start: 20131008, end: 20140329
  3. LIPITOR [Concomitant]
  4. FLONASE [Concomitant]
  5. OMEPRAZOLE [Concomitant]
  6. NAPROXEN [Concomitant]
  7. ZOMETA [Concomitant]
  8. SENNA [Concomitant]
  9. METAMUCIL [Concomitant]
  10. CLARITIN [Concomitant]
  11. ADVAIR [Concomitant]
  12. ASPIRIN [Concomitant]
  13. VESICARE [Concomitant]

REACTIONS (4)
  - Liver disorder [Recovered/Resolved]
  - Pain in extremity [Unknown]
  - Stomatitis [Unknown]
  - Off label use [Unknown]
